FAERS Safety Report 6260767-7 (Version None)
Quarter: 2009Q3

REPORT INFORMATION
  Report Type: 
  Country: None (occurrence: None)
  Receive Date: 20090708
  Receipt Date: 20090701
  Transmission Date: 20100115
  Serious: Yes (Other)
  Sender: FDA-Public Use
  Company Number: US-AMGEN-QUU354105

PATIENT
  Sex: Male

DRUGS (1)
  1. ENBREL [Suspect]
     Indication: ANKYLOSING SPONDYLITIS
     Route: 058
     Dates: start: 20090420, end: 20090421

REACTIONS (4)
  - CHEST PAIN [None]
  - DIZZINESS [None]
  - HEADACHE [None]
  - PAINFUL RESPIRATION [None]
